FAERS Safety Report 11181764 (Version 1)
Quarter: 2015Q2

REPORT INFORMATION
  Report Type: Spontaneous
  Country: US (occurrence: None)
  Receive Date: 20150522
  Receipt Date: 20150522
  Transmission Date: 20150821
  Serious: No
  Sender: FDA-Public Use
  Company Number: PHEH2015US007534

PATIENT
  Age: 81 Year
  Sex: Female

DRUGS (6)
  1. TACLONEX (BETAMETHASONE DIPROPIONATE, CALCIPOTRIOL) [Concomitant]
  2. ZINC (ZINC) [Concomitant]
  3. COSENTYX [Suspect]
     Active Substance: SECUKINUMAB
     Indication: PSORIASIS
  4. MULTI-VIT (VITAMINS NOS) [Concomitant]
     Active Substance: VITAMINS
  5. KEFLEX (CEFALEXIN MONOHYDRATE) [Concomitant]
  6. CODEINE (CODEINE) [Concomitant]
     Active Substance: CODEINE

REACTIONS (2)
  - Neuropathy peripheral [None]
  - Pain [None]
